FAERS Safety Report 19702203 (Version 5)
Quarter: 2022Q3

REPORT INFORMATION
  Report Type: Report from Study
  Country: US (occurrence: US)
  Receive Date: 20210814
  Receipt Date: 20220702
  Transmission Date: 20221026
  Serious: Yes (Hospitalization, Other)
  Sender: FDA-Public Use
  Company Number: US-TAKEDA-US202034000

PATIENT
  Age: 59 Year
  Sex: Female

DRUGS (1)
  1. HUMAN IMMUNOGLOBULIN G [Suspect]
     Active Substance: HUMAN IMMUNOGLOBULIN G
     Indication: Primary immunodeficiency syndrome
     Dosage: 12 GRAM, 1/WEEK
     Route: 058

REACTIONS (13)
  - Nephrolithiasis [Unknown]
  - Parainfluenzae virus infection [Unknown]
  - Crohn^s disease [Unknown]
  - Influenza [Unknown]
  - Asthenia [Unknown]
  - Infusion site scar [Unknown]
  - Eye injury [Unknown]
  - Immunoglobulins decreased [Unknown]
  - Fatigue [Unknown]
  - Product dose omission issue [Unknown]
  - Inappropriate schedule of product administration [Unknown]
  - Product dispensing error [Unknown]
  - Needle issue [Unknown]

NARRATIVE: CASE EVENT DATE: 20201001
